FAERS Safety Report 10916059 (Version 1)
Quarter: 2015Q1

REPORT INFORMATION
  Report Type: Spontaneous
  Country: US (occurrence: None)
  Receive Date: 20150311
  Receipt Date: 20150311
  Transmission Date: 20150721
  Serious: Yes (Life-Threatening, Hospitalization)
  Sender: FDA-Public Use
  Company Number: None

PATIENT
  Age: 73 Year
  Sex: Male
  Weight: 82 kg

DRUGS (15)
  1. ASPIRIN. [Concomitant]
     Active Substance: ASPIRIN
  2. IBUPROFEN. [Concomitant]
     Active Substance: IBUPROFEN
  3. METROGEL [Concomitant]
     Active Substance: METRONIDAZOLE
  4. HCTZ [Concomitant]
     Active Substance: HYDROCHLOROTHIAZIDE
  5. PROPOFOL. [Suspect]
     Active Substance: PROPOFOL
     Indication: CATARACT OPERATION
     Route: 042
     Dates: start: 20150211
  6. ISOSORBIDE MONITRATE [Concomitant]
  7. ATORVASTATIN [Concomitant]
     Active Substance: ATORVASTATIN
  8. LOSARTAN [Concomitant]
     Active Substance: LOSARTAN
  9. NITROGLYCERIN. [Concomitant]
     Active Substance: NITROGLYCERIN
  10. PREDNISONE. [Concomitant]
     Active Substance: PREDNISONE
  11. PLAVIX [Concomitant]
     Active Substance: CLOPIDOGREL BISULFATE
  12. ALLOPURINOL. [Concomitant]
     Active Substance: ALLOPURINOL
  13. CELEBREX [Concomitant]
     Active Substance: CELECOXIB
  14. COLASE [Concomitant]
  15. AMLODIPINE [Concomitant]
     Active Substance: AMLODIPINE BESYLATE

REACTIONS (7)
  - Status epilepticus [None]
  - Myoclonus [None]
  - Mental status changes [None]
  - Bradycardia [None]
  - Delayed recovery from anaesthesia [None]
  - Acute respiratory failure [None]
  - Unresponsive to stimuli [None]

NARRATIVE: CASE EVENT DATE: 20150211
